FAERS Safety Report 4910690-2 (Version None)
Quarter: 2006Q1

REPORT INFORMATION
  Report Type: 
  Country: None (occurrence: None)
  Receive Date: 20060214
  Receipt Date: 20060203
  Transmission Date: 20060701
  Serious: Yes (Hospitalization)
  Sender: FDA-Public Use
  Company Number: US-BRISTOL-MYERS SQUIBB COMPANY-13271234

PATIENT
  Age: 61 Year
  Sex: Female

DRUGS (11)
  1. CARBOPLATIN [Suspect]
     Indication: OVARIAN CANCER
     Route: 042
     Dates: start: 20050913, end: 20050913
  2. ESTRADIOL [Concomitant]
     Indication: HORMONE REPLACEMENT THERAPY
     Route: 061
     Dates: start: 20050505
  3. GABAPENTIN [Concomitant]
     Indication: NEUROPATHY
     Route: 048
     Dates: start: 20050603, end: 20050927
  4. OXCARBAZEPINE [Concomitant]
     Indication: NEUROPATHY
     Route: 048
     Dates: start: 20050728, end: 20050927
  5. LORTAB [Concomitant]
     Indication: PAIN
     Route: 048
     Dates: start: 20050817, end: 20050913
  6. LORAZEPAM [Concomitant]
     Indication: NERVOUSNESS
     Route: 048
     Dates: start: 20050817, end: 20050913
  7. PROMETHAZINE [Concomitant]
     Indication: NAUSEA
     Route: 048
     Dates: start: 20050817
  8. HEPARIN SODIUM [Concomitant]
     Indication: COAGULOPATHY
     Route: 058
     Dates: start: 20050909, end: 20050913
  9. WARFARIN SODIUM [Concomitant]
     Indication: COAGULOPATHY
     Route: 048
     Dates: start: 20050906, end: 20050911
  10. HEPARIN [Concomitant]
     Indication: PREMEDICATION
     Route: 058
     Dates: start: 20050913, end: 20051018
  11. ONDANSETRON HCL [Concomitant]
     Indication: PREMEDICATION
     Route: 058
     Dates: start: 20050913, end: 20050918

REACTIONS (1)
  - DEHYDRATION [None]
